FAERS Safety Report 17754409 (Version 1)
Quarter: 2020Q2

REPORT INFORMATION
  Report Type: Report from Study
  Country: CA (occurrence: CA)
  Receive Date: 20200506
  Receipt Date: 20200506
  Transmission Date: 20200714
  Serious: Yes (Other)
  Sender: FDA-Public Use
  Company Number: CA-PFIZER INC-2020175762

PATIENT
  Age: 59 Year
  Sex: Female

DRUGS (46)
  1. BUPROPION HYDROBROMIDE [Suspect]
     Active Substance: BUPROPION HYDROBROMIDE
     Dosage: 100 MG
  2. DEXAMETHASONE. [Suspect]
     Active Substance: DEXAMETHASONE
     Indication: MIGRAINE
     Dosage: 4 MG
  3. FLUOXETINE [Suspect]
     Active Substance: FLUOXETINE HYDROCHLORIDE
     Dosage: 30 MG
  4. VORTIOXETINE HYDROBROMIDE [Suspect]
     Active Substance: VORTIOXETINE HYDROBROMIDE
     Indication: DEPRESSION
  5. WELLBUTRIN [Suspect]
     Active Substance: BUPROPION HYDROCHLORIDE
     Indication: DEPRESSION
     Dosage: 150 MG
  6. BOTULINUM TOXIN TYPE A [Concomitant]
     Active Substance: BOTULINUM TOXIN TYPE A
     Dosage: 100 IU
  7. CLONAZEPAM. [Concomitant]
     Active Substance: CLONAZEPAM
     Dosage: UNK
  8. CYMBALTA [Concomitant]
     Active Substance: DULOXETINE HYDROCHLORIDE
  9. VENLAFAXINE HYDROCHLORIDE. [Concomitant]
     Active Substance: VENLAFAXINE HYDROCHLORIDE
     Dosage: 37.5 MG
  10. DICLOFENAC [Suspect]
     Active Substance: DICLOFENAC
     Indication: MIGRAINE
     Dosage: UNK
  11. FLUOXETINE [Suspect]
     Active Substance: FLUOXETINE HYDROCHLORIDE
     Indication: MIGRAINE
     Dosage: UNK
  12. IMITREX [Suspect]
     Active Substance: SUMATRIPTAN SUCCINATE
     Indication: MIGRAINE
     Dosage: 100 MG
  13. SUMATRIPTAN SUCCINATE. [Suspect]
     Active Substance: SUMATRIPTAN SUCCINATE
     Indication: MIGRAINE
     Dosage: 100 MG
  14. WELLBUTRIN [Suspect]
     Active Substance: BUPROPION HYDROCHLORIDE
     Indication: DEPRESSION
     Dosage: 100 MG
  15. IMOVANE [Concomitant]
     Active Substance: ZOPICLONE
  16. LAMOTRIGINE. [Concomitant]
     Active Substance: LAMOTRIGINE
     Dosage: UNK
  17. NORFLEX [Concomitant]
     Active Substance: ORPHENADRINE CITRATE
     Dosage: 100 MG
  18. TRAZODONE [Concomitant]
     Active Substance: TRAZODONE HYDROCHLORIDE
     Dosage: 50 MG
  19. CITALOPRAM HYDROBROMIDE. [Suspect]
     Active Substance: CITALOPRAM HYDROBROMIDE
     Indication: DEPRESSION
     Dosage: UNK
  20. FLUOXETINE [Suspect]
     Active Substance: FLUOXETINE HYDROCHLORIDE
     Dosage: 10 MG
  21. FLUOXETINE [Suspect]
     Active Substance: FLUOXETINE HYDROCHLORIDE
     Dosage: 10 MG
  22. PAROXETINE HYDROCHLORIDE. [Concomitant]
     Active Substance: PAROXETINE HYDROCHLORIDE
     Dosage: UNK
  23. CODEINE [Suspect]
     Active Substance: CODEINE
     Indication: MIGRAINE
     Dosage: 100 MG
  24. BOTULINUM TOXIN TYPE A [Concomitant]
     Active Substance: BOTULINUM TOXIN TYPE A
     Dosage: 200 IU
  25. CYCLOBENZAPRINE. [Concomitant]
     Active Substance: CYCLOBENZAPRINE
  26. LYRICA [Concomitant]
     Active Substance: PREGABALIN
     Dosage: 75 MG
  27. TOPAMAX [Concomitant]
     Active Substance: TOPIRAMATE
     Dosage: 25 MG, 2X/DAY
  28. EFFEXOR XR [Suspect]
     Active Substance: VENLAFAXINE HYDROCHLORIDE
     Indication: DEPRESSION
  29. CITALOPRAM HYDROBROMIDE. [Suspect]
     Active Substance: CITALOPRAM HYDROBROMIDE
     Dosage: 20 MG
  30. DICLOFENAC [Suspect]
     Active Substance: DICLOFENAC
     Dosage: 75 MG
  31. ESCITALOPRAM OXALATE. [Concomitant]
     Active Substance: ESCITALOPRAM OXALATE
     Dosage: UNK
  32. GABAPENTIN. [Concomitant]
     Active Substance: GABAPENTIN
     Indication: MIGRAINE
     Dosage: 100 MG
  33. LITHIUM. [Concomitant]
     Active Substance: LITHIUM
     Dosage: 150 MG
  34. NAPROXEN. [Concomitant]
     Active Substance: NAPROXEN
     Dosage: 375 MG
  35. TEMAZEPAM. [Concomitant]
     Active Substance: TEMAZEPAM
     Dosage: 15 MG
  36. BUPROPION HYDROBROMIDE [Suspect]
     Active Substance: BUPROPION HYDROBROMIDE
     Indication: DEPRESSION
     Dosage: 150 MG
  37. ABILIFY [Concomitant]
     Active Substance: ARIPIPRAZOLE
     Dosage: 5 MG
  38. ZOPICLONE SANDOZ [Concomitant]
     Active Substance: ZOPICLONE
     Dosage: 7.5 MG
  39. MORPHINE [Suspect]
     Active Substance: MORPHINE
     Indication: MIGRAINE
     Dosage: 5 MG
  40. BETAMETHASONE DIPROPIONATE\SALICYLIC ACID [Concomitant]
     Active Substance: BETAMETHASONE DIPROPIONATE\SALICYLIC ACID
  41. ELAVIL [ALLOPURINOL] [Concomitant]
     Active Substance: ALLOPURINOL
     Dosage: 25 MG
  42. TYLENOL [Concomitant]
     Active Substance: ACETAMINOPHEN
     Dosage: 30 MG
  43. VENLAFAXINE HCL [Concomitant]
     Active Substance: VENLAFAXINE HYDROCHLORIDE
     Indication: DEPRESSION
     Dosage: UNK
  44. BACLOFEN. [Concomitant]
     Active Substance: BACLOFEN
     Dosage: 10 MG
  45. PREDNISONE. [Concomitant]
     Active Substance: PREDNISONE
     Dosage: 50 MG
  46. ZOPICLONE [Concomitant]
     Active Substance: ZOPICLONE
     Dosage: 7.5 MG

REACTIONS (36)
  - Dysgeusia [Unknown]
  - Hostility [Unknown]
  - Irritability [Unknown]
  - Off label use [Unknown]
  - Product use in unapproved indication [Unknown]
  - Headache [Unknown]
  - Personality disorder [Unknown]
  - Tremor [Unknown]
  - Hypoaesthesia [Unknown]
  - Migraine [Unknown]
  - Hyperhidrosis [Unknown]
  - Memory impairment [Unknown]
  - Rib fracture [Unknown]
  - Soft tissue injury [Unknown]
  - Dizziness [Unknown]
  - Dyspepsia [Unknown]
  - Nightmare [Unknown]
  - Weight decreased [Unknown]
  - Concussion [Unknown]
  - Feeling hot [Unknown]
  - Libido increased [Unknown]
  - Middle insomnia [Unknown]
  - Nausea [Unknown]
  - Poor quality sleep [Unknown]
  - Sternal fracture [Unknown]
  - Weight increased [Unknown]
  - Anxiety [Unknown]
  - Body temperature increased [Unknown]
  - Flushing [Unknown]
  - Gastrooesophageal reflux disease [Unknown]
  - Sedation [Unknown]
  - Somnolence [Unknown]
  - Vertigo [Unknown]
  - Diarrhoea [Unknown]
  - Muscle twitching [Unknown]
  - Post-traumatic neck syndrome [Unknown]
